FAERS Safety Report 22284776 (Version 1)
Quarter: 2023Q2

REPORT INFORMATION
  Report Type: Spontaneous
  Country: CN (occurrence: None)
  Receive Date: 20230504
  Receipt Date: 20230504
  Transmission Date: 20230721
  Serious: Yes (Other)
  Sender: FDA-Public Use
  Company Number: CN-ROCHE-3343090

PATIENT
  Age: 45 Year
  Sex: Female

DRUGS (13)
  1. PERJETA [Suspect]
     Active Substance: PERTUZUMAB
     Indication: Breast cancer stage IV
     Dosage: D1
     Route: 042
     Dates: start: 20200704
  2. PERJETA [Suspect]
     Active Substance: PERTUZUMAB
     Dosage: D1, 10 CYCLES
     Route: 042
     Dates: start: 20200724, end: 20210310
  3. PERJETA [Suspect]
     Active Substance: PERTUZUMAB
     Dosage: D1, 28 DAYS A CYCLE
     Route: 042
     Dates: start: 20210331
  4. HERCEPTIN [Suspect]
     Active Substance: TRASTUZUMAB
     Indication: Breast cancer stage IV
     Dosage: D1
     Route: 041
     Dates: start: 20200704
  5. HERCEPTIN [Suspect]
     Active Substance: TRASTUZUMAB
     Dosage: D1, 10 CYCLES
     Route: 041
     Dates: start: 20200724, end: 20210310
  6. HERCEPTIN [Suspect]
     Active Substance: TRASTUZUMAB
     Dosage: D1, 28 DAYS A CYCLE
     Route: 042
     Dates: start: 20210331
  7. DOCETAXEL [Concomitant]
     Active Substance: DOCETAXEL
     Indication: Breast cancer stage IV
     Dosage: D2
     Dates: start: 20200704
  8. DOCETAXEL [Concomitant]
     Active Substance: DOCETAXEL
     Dosage: D2, 10 CYCLES
     Dates: start: 20200724, end: 20210310
  9. CARBOPLATIN [Concomitant]
     Active Substance: CARBOPLATIN
     Indication: Breast cancer stage IV
     Dosage: D2
     Dates: start: 20200704
  10. CARBOPLATIN [Concomitant]
     Active Substance: CARBOPLATIN
     Dosage: D2, 10 CYCLES
     Dates: start: 20200724, end: 20210310
  11. DENOSUMAB [Concomitant]
     Active Substance: DENOSUMAB
  12. LEUPROLIDE ACETATE [Concomitant]
     Active Substance: LEUPROLIDE ACETATE
     Indication: Breast cancer stage IV
     Dosage: D1, 28 DAYS A CYCLE
     Route: 059
     Dates: start: 20210331
  13. ANASTROZOLE [Concomitant]
     Active Substance: ANASTROZOLE
     Indication: Breast cancer stage IV
     Dosage: D1-D28, 28 DAYS A CYCLE
     Route: 048
     Dates: start: 20210331

REACTIONS (1)
  - Myelosuppression [Recovering/Resolving]
